FAERS Safety Report 4394202-0 (Version None)
Quarter: 2004Q3

REPORT INFORMATION
  Report Type: 
  Country: None (occurrence: None)
  Receive Date: 20040712
  Receipt Date: 20040607
  Transmission Date: 20050211
  Serious: Yes (Hospitalization)
  Sender: FDA-Public Use
  Company Number: KR-BRISTOL-MYERS SQUIBB COMPANY-12609889

PATIENT
  Age: 64 Year
  Sex: Male

DRUGS (5)
  1. CEFZIL [Suspect]
     Indication: ASTHMA
     Route: 048
     Dates: start: 20040515, end: 20040521
  2. CEFZIL [Suspect]
     Indication: PHARYNGOLARYNGEAL PAIN
     Route: 048
     Dates: start: 20040515, end: 20040521
  3. TRIMEBUTINE [Concomitant]
     Dates: start: 20040515, end: 20040521
  4. BENZALKONIUM CHLORIDE [Concomitant]
     Dates: start: 20040515, end: 20040521
  5. AZELASTINE [Concomitant]
     Dates: start: 20040515, end: 20040521

REACTIONS (2)
  - HEPATITIS CHOLESTATIC [None]
  - JAUNDICE [None]
